FAERS Safety Report 19995488 (Version 1)
Quarter: 2021Q4

REPORT INFORMATION
  Report Type: Spontaneous
  Country: FR (occurrence: FR)
  Receive Date: 20211025
  Receipt Date: 20211025
  Transmission Date: 20220303
  Serious: Yes (Hospitalization)
  Sender: FDA-Public Use
  Company Number: None

PATIENT
  Age: 85 Year
  Sex: Male
  Weight: 84 kg

DRUGS (12)
  1. FUROSEMIDE [Suspect]
     Active Substance: FUROSEMIDE
     Indication: Cardiac failure
     Dosage: 40 MILLIGRAM, QD
     Route: 048
  2. SPIRONOLACTONE [Suspect]
     Active Substance: SPIRONOLACTONE
     Indication: Cardiac failure
     Dosage: UNK
     Route: 048
  3. FLECAINIDE ACETATE [Suspect]
     Active Substance: FLECAINIDE ACETATE
     Indication: Atrial fibrillation
     Dosage: UNK
     Route: 048
     Dates: end: 202107
  4. MIRTAZAPINE [Concomitant]
     Active Substance: MIRTAZAPINE
     Indication: Depression
     Dosage: UNK
     Route: 048
     Dates: start: 202104
  5. FENTANYL [Concomitant]
     Active Substance: FENTANYL
     Indication: Pain
     Dosage: UNK
     Route: 062
  6. ACENOCOUMAROL [Concomitant]
     Active Substance: ACENOCOUMAROL
     Indication: Thrombosis prophylaxis
     Dosage: UNK
     Route: 048
  7. ERIVEDGE [Concomitant]
     Active Substance: VISMODEGIB
     Indication: Basal cell carcinoma
     Dosage: 1 DOSAGE FORM, QD
     Route: 048
     Dates: start: 20160517, end: 20161124
  8. ERIVEDGE [Concomitant]
     Active Substance: VISMODEGIB
     Dosage: 1 DOSAGE FORM, QD
     Route: 048
     Dates: start: 20170921, end: 20180607
  9. ERIVEDGE [Concomitant]
     Active Substance: VISMODEGIB
     Dosage: 150 MILLIGRAM, QD
     Route: 048
     Dates: start: 20200120, end: 20200305
  10. ERIVEDGE [Concomitant]
     Active Substance: VISMODEGIB
     Dosage: 150 MILLIGRAM, QD
     Route: 048
     Dates: start: 20200925
  11. OXYCODONE [Concomitant]
     Active Substance: OXYCODONE
     Indication: Cancer pain
     Dosage: UNK
     Route: 048
     Dates: start: 202102
  12. TAMSULOSIN [Concomitant]
     Active Substance: TAMSULOSIN
     Indication: Benign prostatic hyperplasia
     Dosage: UNK
     Route: 048

REACTIONS (1)
  - Interstitial lung disease [Not Recovered/Not Resolved]

NARRATIVE: CASE EVENT DATE: 20210528
